FAERS Safety Report 10907917 (Version 1)
Quarter: 2015Q1

REPORT INFORMATION
  Report Type: Spontaneous
  Country: RS (occurrence: None)
  Receive Date: 20150309
  Receipt Date: 20150309
  Transmission Date: 20150721
  Serious: Yes (Other)
  Sender: FDA-Public Use
  Company Number: 2015AKN00113

PATIENT
  Age: 64 Year
  Sex: Male

DRUGS (5)
  1. LORAZEPAM. [Concomitant]
     Active Substance: LORAZEPAM
  2. CHLORPROMAZINE [Concomitant]
     Active Substance: CHLORPROMAZINE
  3. ERYTHROMYCIN (ERYTHROMYCIN) [Suspect]
     Active Substance: ERYTHROMYCIN
     Indication: SKIN INFECTION
     Dates: start: 199905, end: 1999
  4. ERYTHROMYCIN (ERYTHROMYCIN) [Suspect]
     Active Substance: ERYTHROMYCIN
     Indication: BRONCHITIS
     Dates: start: 199905, end: 1999
  5. FLUPHENAZINE DECANOATE (FLUPHENAZINE) [Concomitant]

REACTIONS (11)
  - Cough [None]
  - Condition aggravated [None]
  - Psychomotor hyperactivity [None]
  - Insomnia [None]
  - Asthenia [None]
  - Acute psychosis [None]
  - Anxiety [None]
  - Speech disorder [None]
  - Delusion [None]
  - Dyspnoea [None]
  - Hallucination [None]

NARRATIVE: CASE EVENT DATE: 199905
